FAERS Safety Report 6121327-1 (Version None)
Quarter: 2009Q1

REPORT INFORMATION
  Report Type: 
  Country: None (occurrence: None)
  Receive Date: 20090317
  Receipt Date: 20090309
  Transmission Date: 20090719
  Serious: Yes (Hospitalization)
  Sender: FDA-Public Use
  Company Number: US-ABBOTT-09P-163-0561280-00

PATIENT
  Sex: Male
  Weight: 65.83 kg

DRUGS (4)
  1. HUMIRA [Suspect]
     Indication: CROHN'S DISEASE
     Route: 058
     Dates: start: 20080101, end: 20090226
  2. VALTREX [Concomitant]
     Indication: HERPES ZOSTER
     Dosage: UNKNOWN
  3. PENTASA [Concomitant]
     Indication: CROHN'S DISEASE
     Dosage: UNKNOWN
  4. KLONOPIN [Concomitant]
     Indication: SLEEP DISORDER
     Dosage: UNKNOWN

REACTIONS (4)
  - ABDOMINAL PAIN [None]
  - INCISION SITE HAEMATOMA [None]
  - SCAR [None]
  - SMALL INTESTINAL OBSTRUCTION [None]
